FAERS Safety Report 19474458 (Version 1)
Quarter: 2021Q2

REPORT INFORMATION
  Report Type: Spontaneous
  Country: CN (occurrence: CN)
  Receive Date: 20210629
  Receipt Date: 20210629
  Transmission Date: 20210717
  Serious: Yes (Hospitalization)
  Sender: FDA-Public Use
  Company Number: CN-PFIZER INC-2021716829

PATIENT
  Age: 39 Year
  Sex: Male

DRUGS (1)
  1. METHYLPREDNISOLONE. [Suspect]
     Active Substance: METHYLPREDNISOLONE
     Indication: UVEITIS
     Dosage: 100 MG, 1X/DAY
     Route: 048
     Dates: start: 20210501, end: 20210515

REACTIONS (5)
  - Skin disorder [Unknown]
  - Skin plaque [Unknown]
  - Cataract [Not Recovered/Not Resolved]
  - Erythema [Unknown]
  - Skin atrophy [Unknown]

NARRATIVE: CASE EVENT DATE: 2021
